FAERS Safety Report 9234052 (Version 1)
Quarter: 2013Q2

REPORT INFORMATION
  Report Type: Spontaneous
  Country: US (occurrence: US)
  Receive Date: 20130416
  Receipt Date: 20130416
  Transmission Date: 20140414
  Serious: Yes (Death)
  Sender: FDA-Public Use
  Company Number: US-PFIZER INC-2013116178

PATIENT
  Age: 44 Year
  Sex: Male

DRUGS (1)
  1. CAMPTOSAR [Suspect]
     Indication: COLON CANCER
     Dosage: 250 MG, UNK
     Dates: start: 20130314

REACTIONS (2)
  - Disease progression [Fatal]
  - Colon cancer [Fatal]
